FAERS Safety Report 7896225-3 (Version None)
Quarter: 2011Q4

REPORT INFORMATION
  Report Type: 
  Country: None (occurrence: None)
  Receive Date: 20111106
  Receipt Date: 20110907
  Transmission Date: 20120403
  Serious: No
  Sender: FDA-Public Use
  Company Number: US-AMGEN-USASP2011037381

PATIENT
  Age: 62 Year
  Sex: Female

DRUGS (1)
  1. ENBREL [Suspect]
     Indication: RHEUMATOID ARTHRITIS
     Dosage: 25 MG, 2 TIMES/WK
     Dates: start: 20040101

REACTIONS (8)
  - FATIGUE [None]
  - GASTRIC DISORDER [None]
  - TOOTH FRACTURE [None]
  - TOOTH EXTRACTION [None]
  - URTICARIA [None]
  - DENTAL IMPLANTATION [None]
  - JOINT SWELLING [None]
  - ARTHRALGIA [None]
